FAERS Safety Report 18772466 (Version 1)
Quarter: 2021Q1

REPORT INFORMATION
  Report Type: Report from Study
  Country: RS (occurrence: RS)
  Receive Date: 20210121
  Receipt Date: 20210121
  Transmission Date: 20210419
  Serious: Yes (Hospitalization)
  Sender: FDA-Public Use
  Company Number: RS-JNJFOC-20200433639

PATIENT
  Age: 62 Year
  Sex: Male
  Weight: 68 kg

DRUGS (9)
  1. METHYLPREDNISOLONE. [Concomitant]
     Active Substance: METHYLPREDNISOLONE
     Indication: CROHN^S DISEASE
     Route: 042
     Dates: start: 20200505, end: 20200506
  2. LEVOFLAXIN [Concomitant]
     Active Substance: LEVOFLOXACIN
     Route: 048
     Dates: start: 20200421
  3. LACTULOSE. [Concomitant]
     Active Substance: LACTULOSE
     Indication: CROHN^S DISEASE
     Route: 048
  4. BUTYLSCOPOLAMINE [Concomitant]
     Active Substance: BUTYLSCOPOLAMINE
  5. BROMAZEPAM [Concomitant]
     Active Substance: BROMAZEPAM
     Route: 048
  6. DEXASONE                           /00016001/ [Concomitant]
     Active Substance: DEXAMETHASONE
     Indication: CROHN^S DISEASE
     Route: 042
     Dates: start: 20200430, end: 20200503
  7. TAMSOL [Concomitant]
     Route: 048
     Dates: start: 2017
  8. RABEPRAZOLE [Concomitant]
     Active Substance: RABEPRAZOLE
     Route: 048
     Dates: start: 20200424
  9. ADALIMUMAB [Suspect]
     Active Substance: ADALIMUMAB
     Indication: CROHN^S DISEASE
     Route: 058
     Dates: start: 20190822

REACTIONS (1)
  - Pneumonia [Recovered/Resolved]

NARRATIVE: CASE EVENT DATE: 20200420
